FAERS Safety Report 18935012 (Version 2)
Quarter: 2021Q4

REPORT INFORMATION
  Report Type: Report from Study
  Country: US (occurrence: US)
  Receive Date: 20210224
  Receipt Date: 20211018
  Transmission Date: 20220303
  Serious: No
  Sender: FDA-Public Use
  Company Number: US-TAKEDA-2021TUS011745

PATIENT
  Age: 29 Year
  Sex: Male
  Weight: 97.51 kg

DRUGS (18)
  1. CUVITRU [Suspect]
     Active Substance: HUMAN IMMUNOGLOBULIN G
     Indication: Immunodeficiency common variable
     Dosage: 10 GRAM, 1/WEEK
     Route: 058
     Dates: start: 20210129
  2. XOLAIR [Concomitant]
     Active Substance: OMALIZUMAB
  3. ACETAMINOPHEN [Concomitant]
     Active Substance: ACETAMINOPHEN
  4. DIPHENHYDRAMINE [Concomitant]
     Active Substance: DIPHENHYDRAMINE
  5. LIDOCAINE [Concomitant]
     Active Substance: LIDOCAINE
  6. EPINEPHRINE [Concomitant]
     Active Substance: EPINEPHRINE
  7. HIZENTRA [Concomitant]
     Active Substance: HUMAN IMMUNOGLOBULIN G
  8. ZYRTEC [Concomitant]
     Active Substance: CETIRIZINE HYDROCHLORIDE
  9. CITALOPRAM [Concomitant]
     Active Substance: CITALOPRAM HYDROBROMIDE
  10. SINGULAIR [Concomitant]
     Active Substance: MONTELUKAST SODIUM
  11. FLUTICASONE [Concomitant]
     Active Substance: FLUTICASONE
  12. VENTOLIN [Concomitant]
     Active Substance: ALBUTEROL SULFATE
  13. OMEPRAZOLE [Concomitant]
     Active Substance: OMEPRAZOLE
  14. VITAMINS [Concomitant]
     Active Substance: VITAMINS
  15. BIFIDOBACTERIUM ANIMALIS LACTIS [Concomitant]
     Active Substance: BIFIDOBACTERIUM ANIMALIS LACTIS
  16. ACRIVASTINE [Concomitant]
     Active Substance: ACRIVASTINE
  17. AZELASTINE. [Concomitant]
     Active Substance: AZELASTINE HYDROCHLORIDE
  18. ALBUTEROL [Concomitant]
     Active Substance: ALBUTEROL

REACTIONS (3)
  - Gastroenteritis viral [Unknown]
  - Sinusitis [Unknown]
  - Malaise [Unknown]

NARRATIVE: CASE EVENT DATE: 20210213
